FAERS Safety Report 13680785 (Version 2)
Quarter: 2017Q2

REPORT INFORMATION
  Report Type: Spontaneous
  Country: US (occurrence: US)
  Receive Date: 20170623
  Receipt Date: 20170628
  Transmission Date: 20170830
  Serious: No
  Sender: FDA-Public Use
  Company Number: US-AMGEN-USASP2017086448

PATIENT
  Age: 59 Year
  Sex: Female
  Weight: 52.61 kg

DRUGS (11)
  1. PROCRIT [Suspect]
     Active Substance: ERYTHROPOIETIN
     Dosage: 7500 UNIT, QWK
     Route: 058
     Dates: start: 20170526
  2. PROCRIT [Suspect]
     Active Substance: ERYTHROPOIETIN
     Dosage: 10000 UNIT, QWK
     Route: 058
     Dates: start: 20170602, end: 20170609
  3. PROCRIT [Suspect]
     Active Substance: ERYTHROPOIETIN
     Indication: REFRACTORY CYTOPENIA WITH UNILINEAGE DYSPLASIA
     Dosage: 1500 UNIT, QWK
     Route: 058
     Dates: start: 201704
  4. PROCRIT [Suspect]
     Active Substance: ERYTHROPOIETIN
     Indication: MYELODYSPLASTIC SYNDROME
     Dosage: 10000 UNIT, QWK
     Route: 058
     Dates: start: 20140910
  5. PROCRIT [Suspect]
     Active Substance: ERYTHROPOIETIN
     Dosage: 2500 UNIT, QWK
     Route: 058
     Dates: start: 20170414
  6. AGRYLIN [Concomitant]
     Active Substance: ANAGRELIDE HYDROCHLORIDE
     Dosage: 0.5 MG, (THREE TABLETS ALTERNATING WITH FOUR TABLETS DAILY)
  7. PROCRIT [Suspect]
     Active Substance: ERYTHROPOIETIN
     Indication: MYELOFIBROSIS
     Dosage: 5000 UNIT, QWK
     Route: 058
     Dates: start: 201512
  8. PROCRIT [Suspect]
     Active Substance: ERYTHROPOIETIN
     Dosage: 5000 UNIT, QWK
     Route: 058
     Dates: start: 20170421
  9. HYDREA [Concomitant]
     Active Substance: HYDROXYUREA
     Dosage: 500 MG, QD
  10. VITAMIN D [Concomitant]
     Active Substance: CHOLECALCIFEROL
     Dosage: 400 UNIT, UNK
  11. PREDNISONE. [Concomitant]
     Active Substance: PREDNISONE
     Indication: IMMUNOSUPPRESSANT DRUG THERAPY
     Dosage: 20 MG, UNK
     Dates: start: 20170609

REACTIONS (8)
  - Arthralgia [Unknown]
  - Off label use [Unknown]
  - Haemoglobin decreased [Recovered/Resolved]
  - Weight decreased [Unknown]
  - Headache [Unknown]
  - Drug effect decreased [Unknown]
  - Drug intolerance [Unknown]
  - Blood iron abnormal [Recovered/Resolved]

NARRATIVE: CASE EVENT DATE: 201512
